FAERS Safety Report 17566281 (Version 1)
Quarter: 2020Q1

REPORT INFORMATION
  Report Type: Spontaneous
  Country: FR (occurrence: FR)
  Receive Date: 20200320
  Receipt Date: 20200320
  Transmission Date: 20200409
  Serious: Yes (Life-Threatening, Hospitalization)
  Sender: FDA-Public Use
  Company Number: FR-EMD SERONO-E2B_90075888

PATIENT
  Age: 37 Year
  Sex: Female
  Weight: 78 kg

DRUGS (3)
  1. GANIRELIX ACETATE. [Suspect]
     Active Substance: GANIRELIX ACETATE
     Indication: IN VITRO FERTILISATION
     Route: 058
     Dates: start: 20200122, end: 20200127
  2. GONAL-F [Suspect]
     Active Substance: FOLLITROPIN
     Indication: IN VITRO FERTILISATION
     Route: 058
     Dates: start: 20200117, end: 20200127
  3. OVITRELLE [Suspect]
     Active Substance: CHORIOGONADOTROPIN ALFA
     Indication: IN VITRO FERTILISATION
     Route: 058
     Dates: start: 20200128

REACTIONS (5)
  - Ascites [Recovered/Resolved]
  - Haemoconcentration [Recovered/Resolved]
  - Hydrothorax [Recovered/Resolved]
  - Pericarditis [Recovered/Resolved]
  - Capillary leak syndrome [Recovered/Resolved]

NARRATIVE: CASE EVENT DATE: 20200204
